FAERS Safety Report 21027244 (Version 1)
Quarter: 2022Q2

REPORT INFORMATION
  Report Type: Spontaneous
  Country: US (occurrence: US)
  Receive Date: 20220630
  Receipt Date: 20220630
  Transmission Date: 20220721
  Serious: Yes (Disabling, Other)
  Sender: FDA-Public Use
  Company Number: US-SANOFI-01166652

PATIENT
  Age: 81 Year
  Sex: Female

DRUGS (2)
  1. TOUJEO [Suspect]
     Active Substance: INSULIN GLARGINE
     Dosage: UNK
  2. TOUJEO [Suspect]
     Active Substance: INSULIN GLARGINE
     Dosage: 30 IU

REACTIONS (1)
  - Deafness [Unknown]
